FAERS Safety Report 17377065 (Version 6)
Quarter: 2020Q3

REPORT INFORMATION
  Report Type: Spontaneous
  Country: US (occurrence: US)
  Receive Date: 20200206
  Receipt Date: 20200706
  Transmission Date: 20201102
  Serious: No
  Sender: FDA-Public Use
  Company Number: US-PFIZER INC-2020052549

PATIENT
  Age: 57 Year
  Sex: Female

DRUGS (1)
  1. LYRICA [Suspect]
     Active Substance: PREGABALIN
     Dosage: UNK

REACTIONS (6)
  - Malaise [Unknown]
  - Cold sweat [Unknown]
  - Diarrhoea [Unknown]
  - Hyperhidrosis [Unknown]
  - Chills [Unknown]
  - Bone disorder [Unknown]
